FAERS Safety Report 12482823 (Version 4)
Quarter: 2017Q1

REPORT INFORMATION
  Report Type: Report from Study
  Country: US (occurrence: US)
  Receive Date: 20160620
  Receipt Date: 20170130
  Transmission Date: 20170428
  Serious: Yes (Death, Hospitalization)
  Sender: FDA-Public Use
  Company Number: US-ACTELION-A-NJ2016-137940

PATIENT
  Age: 63 Year
  Sex: Female

DRUGS (2)
  1. WARFARIN [Concomitant]
     Active Substance: WARFARIN
  2. OPSUMIT [Suspect]
     Active Substance: MACITENTAN
     Indication: PULMONARY ARTERIAL HYPERTENSION
     Dosage: 10 MG, QD
     Route: 048
     Dates: start: 20151208, end: 20170116

REACTIONS (25)
  - Condition aggravated [Unknown]
  - Fatigue [Recovered/Resolved]
  - Dyspnoea [Recovered/Resolved]
  - Hyporesponsive to stimuli [Unknown]
  - Lethargy [Unknown]
  - Mental status changes [Unknown]
  - Right ventricular failure [Unknown]
  - Headache [Recovered/Resolved]
  - Productive cough [Recovered/Resolved]
  - Hypotension [Fatal]
  - Hypoxia [Recovered/Resolved]
  - Chronic obstructive pulmonary disease [Unknown]
  - Atrial fibrillation [Unknown]
  - Deep vein thrombosis [Unknown]
  - Chest pain [Recovered/Resolved]
  - Dialysis device insertion [Unknown]
  - Hypercapnia [Fatal]
  - Nausea [Recovered/Resolved]
  - Fluid overload [Recovered/Resolved]
  - Sleep apnoea syndrome [Unknown]
  - Pulmonary hypertension [Unknown]
  - Shock [Unknown]
  - Vascular graft [Unknown]
  - Obesity [Unknown]
  - Oedema [Recovered/Resolved]

NARRATIVE: CASE EVENT DATE: 20160620
